FAERS Safety Report 20749937 (Version 1)
Quarter: 2022Q2

REPORT INFORMATION
  Report Type: Spontaneous
  Country: US (occurrence: None)
  Receive Date: 20220425
  Receipt Date: 20220425
  Transmission Date: 20220721
  Serious: No
  Sender: FDA-Public Use
  Company Number: None

PATIENT
  Age: 74 Year
  Sex: Female
  Weight: 73.94 kg

DRUGS (25)
  1. CAPECITABINE [Suspect]
     Active Substance: CAPECITABINE
     Indication: Breast cancer female
     Dosage: FREQUENCY : TWICE A DAY;?
     Route: 048
  2. ACETAMINOPHEN [Concomitant]
     Active Substance: ACETAMINOPHEN
  3. Aspirin Low Doses [Concomitant]
  4. ATORVASTATIN CALCIUM [Concomitant]
     Active Substance: ATORVASTATIN CALCIUM
  5. CIPROFLOXACIN HYDROCHLORIDE [Concomitant]
     Active Substance: CIPROFLOXACIN HYDROCHLORIDE
  6. DIPHENHYDRAMINE HYDROCHLORIDE [Concomitant]
     Active Substance: DIPHENHYDRAMINE HYDROCHLORIDE
  7. FASLODEX [Concomitant]
     Active Substance: FULVESTRANT
  8. FLUTICASONE PROPIONATE [Concomitant]
     Active Substance: FLUTICASONE PROPIONATE
  9. LEVOTHYROXINE SODIUM [Concomitant]
     Active Substance: LEVOTHYROXINE SODIUM
  10. Lidocaine HCI [Concomitant]
  11. LISINOPRIL [Concomitant]
     Active Substance: LISINOPRIL
  12. LubinFresh P.M. [Concomitant]
  13. METAMUCIL [Concomitant]
     Active Substance: PLANTAGO SEED
  14. metrpnidazole [Concomitant]
  15. NAPROXEN [Concomitant]
     Active Substance: NAPROXEN
  16. OMEPRAZOLE [Concomitant]
     Active Substance: OMEPRAZOLE
  17. OXYCODONE HYDROCHLORIDE [Concomitant]
     Active Substance: OXYCODONE HYDROCHLORIDE
  18. PEG 400 Monostearate [Concomitant]
  19. SENNA [Concomitant]
     Active Substance: SENNA LEAF\SENNOSIDES\SENNOSIDES A AND B
  20. Sertraline HCI [Concomitant]
  21. Trazodone HCI [Concomitant]
  22. TYLENOL [Concomitant]
     Active Substance: ACETAMINOPHEN
  23. VITAMIN D3 [Concomitant]
     Active Substance: CHOLECALCIFEROL
  24. WHITE PETROLATUM [Concomitant]
     Active Substance: PETROLATUM
  25. ZOLEDRONIC ACID [Concomitant]
     Active Substance: ZOLEDRONIC ACID

REACTIONS (2)
  - Diverticulitis [None]
  - Skin fissures [None]
